FAERS Safety Report 17619697 (Version 1)
Quarter: 2020Q2

REPORT INFORMATION
  Report Type: Spontaneous
  Country: FR (occurrence: FR)
  Receive Date: 20200403
  Receipt Date: 20200403
  Transmission Date: 20200713
  Serious: Yes (Other)
  Sender: FDA-Public Use
  Company Number: FR-EMD SERONO-E2B_90076257

PATIENT
  Age: 27 Year
  Sex: Female
  Weight: 48 kg

DRUGS (4)
  1. PUREGON                            /01348901/ [Suspect]
     Active Substance: FOLLITROPIN
     Indication: CONTROLLED OVARIAN STIMULATION
     Route: 058
     Dates: start: 20190831, end: 20190904
  2. OVITRELLE [Suspect]
     Active Substance: CHORIOGONADOTROPIN ALFA
     Indication: OVULATION INDUCTION
     Route: 058
     Dates: start: 20190910, end: 20190910
  3. PUREGON                            /01348901/ [Suspect]
     Active Substance: FOLLITROPIN
     Dosage: 50 UI/0.5 ML
     Route: 058
     Dates: start: 20190905, end: 20190909
  4. ORGALUTRAN [Suspect]
     Active Substance: GANIRELIX ACETATE
     Indication: CONTROLLED OVARIAN STIMULATION
     Dosage: 0.25 MG/0.5 ML
     Route: 058
     Dates: start: 20190905, end: 20190910

REACTIONS (5)
  - Decreased appetite [Recovered/Resolved]
  - Orthopnoea [Recovered/Resolved]
  - Flatulence [Recovered/Resolved]
  - Chest pain [Recovered/Resolved]
  - Pleural effusion [Recovered/Resolved]

NARRATIVE: CASE EVENT DATE: 20190916
